FAERS Safety Report 8701475 (Version 2)
Quarter: 2013Q4

REPORT INFORMATION
  Report Type: Spontaneous
  Country: US (occurrence: US)
  Receive Date: 20120802
  Receipt Date: 20131105
  Transmission Date: 20140711
  Serious: Yes (Disabling, Other)
  Sender: FDA-Public Use
  Company Number: US-MSD-1207USA011293

PATIENT
  Age: 54 Year
  Sex: Female

DRUGS (4)
  1. ZOCOR [Suspect]
     Dosage: 1 DF, QD
     Route: 048
  2. ALEVE [Concomitant]
     Dosage: UNK
  3. ALEVE [Concomitant]
     Dosage: UNK
  4. CITALOPRAM [Concomitant]
     Dosage: UNK

REACTIONS (9)
  - Fall [Unknown]
  - Abasia [Unknown]
  - Hypoaesthesia [Unknown]
  - Pain in extremity [Unknown]
  - Muscle spasms [Unknown]
  - Blood creatine phosphokinase increased [Unknown]
  - No therapeutic response [Unknown]
  - Muscular weakness [Unknown]
  - Paraesthesia [Unknown]
